FAERS Safety Report 8576867-2 (Version None)
Quarter: 2012Q3

REPORT INFORMATION
  Report Type: 
  Country: None (occurrence: None)
  Receive Date: 20120807
  Receipt Date: 20120727
  Transmission Date: 20120928
  Serious: Yes (Hospitalization)
  Sender: FDA-Public Use
  Company Number: US-ACTELION-A-NJ2012-64847

PATIENT
  Age: 62 Year
  Sex: Female

DRUGS (3)
  1. TRACLEER [Suspect]
     Indication: PULMONARY ARTERIAL HYPERTENSION
     Dosage: UNK
     Route: 048
     Dates: start: 20021219
  2. REMODULIN [Concomitant]
  3. SILDENAFIL [Concomitant]

REACTIONS (6)
  - INFUSION SITE ERYTHEMA [None]
  - STAPHYLOCOCCAL INFECTION [None]
  - STAPHYLOCOCCAL SEPSIS [None]
  - INFUSION SITE INFECTION [None]
  - VISION BLURRED [None]
  - INJECTION SITE DISCHARGE [None]
